FAERS Safety Report 4504611-4 (Version None)
Quarter: 2004Q4

REPORT INFORMATION
  Report Type: 
  Country: None (occurrence: None)
  Receive Date: 20041118
  Receipt Date: 20041111
  Transmission Date: 20050328
  Serious: Yes (Other)
  Sender: FDA-Public Use
  Company Number: GB-GLAXOSMITHKLINE-B0351199A

PATIENT
  Age: 41 Year
  Sex: Female

DRUGS (1)
  1. ZYBAN [Suspect]
     Indication: SMOKING CESSATION THERAPY
     Route: 048
     Dates: start: 20040917, end: 20041108

REACTIONS (4)
  - AGITATION [None]
  - ANXIETY [None]
  - DEPRESSION [None]
  - HOMICIDAL IDEATION [None]
